FAERS Safety Report 10160034 (Version 3)
Quarter: 2014Q2

REPORT INFORMATION
  Report Type: Report from Study
  Country: CN (occurrence: CN)
  Receive Date: 20140508
  Receipt Date: 20140508
  Transmission Date: 20141212
  Serious: Yes (Other)
  Sender: FDA-Public Use
  Company Number: CN-ABBVIE-13P-035-1059889-00

PATIENT
  Age: 59 Year
  Sex: Male
  Weight: 74.5 kg

DRUGS (5)
  1. LIPANTHYL [Suspect]
     Indication: DYSLIPIDAEMIA
     Route: 048
     Dates: start: 20121219, end: 20130219
  2. LIPITOR [Concomitant]
     Indication: DYSLIPIDAEMIA
     Route: 048
     Dates: start: 20100427, end: 20130225
  3. BAYASPIRIN [Concomitant]
     Indication: CORONARY ARTERY DISEASE
     Route: 048
     Dates: start: 20100417
  4. BETALOC ZOK [Concomitant]
     Indication: CORONARY ARTERY DISEASE
     Route: 048
     Dates: start: 20120417
  5. DIOVAN [Concomitant]
     Indication: CORONARY ARTERY DISEASE
     Route: 048
     Dates: start: 201005

REACTIONS (1)
  - Transaminases increased [Recovered/Resolved]
